FAERS Safety Report 22032038 (Version 1)
Quarter: 2023Q1

REPORT INFORMATION
  Report Type: Spontaneous
  Country: CN (occurrence: None)
  Receive Date: 20230224
  Receipt Date: 20230224
  Transmission Date: 20230418
  Serious: Yes (Hospitalization, Other)
  Sender: FDA-Public Use
  Company Number: 2023A040678

PATIENT
  Age: 53 Year
  Sex: Female

DRUGS (6)
  1. OSIMERTINIB [Suspect]
     Active Substance: OSIMERTINIB
     Indication: Lung adenocarcinoma stage III
     Route: 048
  2. GEFITINIB [Suspect]
     Active Substance: GEFITINIB
     Indication: Lung adenocarcinoma stage III
     Route: 048
  3. BEVACIZUMAB [Concomitant]
     Active Substance: BEVACIZUMAB
  4. CARBOPLATIN [Concomitant]
     Active Substance: CARBOPLATIN
  5. PEMETREXED [Concomitant]
     Active Substance: PEMETREXED
  6. SINTILIMAB [Concomitant]
     Active Substance: SINTILIMAB

REACTIONS (8)
  - Malignant neoplasm progression [Unknown]
  - Drug resistance [Unknown]
  - Pneumonia [Unknown]
  - Lymphadenopathy [Unknown]
  - Pleural effusion [Unknown]
  - Pericardial effusion [Unknown]
  - Gene mutation [Unknown]
  - Atelectasis [Unknown]
